FAERS Safety Report 4642116-0 (Version None)
Quarter: 2005Q2

REPORT INFORMATION
  Report Type: 
  Country: None (occurrence: None)
  Receive Date: 20050421
  Receipt Date: 20050421
  Transmission Date: 20051028
  Serious: Yes (Hospitalization)
  Sender: FDA-Public Use
  Company Number: None

PATIENT
  Sex: Female
  Weight: 72.5755 kg

DRUGS (16)
  1. ERBITUX [Suspect]
     Indication: NON-SMALL CELL LUNG CANCER
     Dosage: 440MG  IV Q WEEK
     Route: 042
  2. TAXOL [Concomitant]
  3. CARBOPLATIN [Concomitant]
  4. ZOLOFT [Concomitant]
  5. NEXIUM [Concomitant]
  6. MOBIC [Concomitant]
  7. POTASSIUM CHLORIDE [Concomitant]
  8. GLUCOPHAGE [Concomitant]
  9. HTZ [Concomitant]
  10. LISINOPRIL [Concomitant]
  11. TOPROL-XL [Concomitant]
  12. CRESTOR [Concomitant]
  13. NORTRIPTYLINE HCL [Concomitant]
  14. CLONAZEPAM [Concomitant]
  15. ALPHAGAN [Concomitant]
  16. TIMOLOL MALEATE [Concomitant]

REACTIONS (5)
  - BLOOD PRESSURE DECREASED [None]
  - CHEST DISCOMFORT [None]
  - CHEST PAIN [None]
  - DYSPNOEA [None]
  - PULSE PRESSURE DECREASED [None]
